FAERS Safety Report 6532896-1 (Version None)
Quarter: 2009Q4

REPORT INFORMATION
  Report Type: 
  Country: None (occurrence: None)
  Receive Date: 20091231
  Receipt Date: 20091217
  Transmission Date: 20100525
  Serious: Yes (Death, Hospitalization)
  Sender: FDA-Public Use
  Company Number: 102

PATIENT
  Age: 72 Year
  Sex: Male

DRUGS (1)
  1. FAZACLO ODT [Suspect]
     Dosage: 25 MG PO DAILY
     Route: 048
     Dates: start: 20061031, end: 20070216

REACTIONS (5)
  - FALL [None]
  - FEMORAL NECK FRACTURE [None]
  - NERVOUS SYSTEM DISORDER [None]
  - NEURODEGENERATIVE DISORDER [None]
  - PNEUMONIA ASPIRATION [None]
